FAERS Safety Report 22251572 (Version 1)
Quarter: 2023Q2

REPORT INFORMATION
  Report Type: 
  Country: US (occurrence: US)
  Receive Date: 20230425
  Receipt Date: 20230425
  Transmission Date: 20230722
  Serious: Yes (Disabling, Other)
  Sender: FDA-Public Use
  Company Number: US-C B Fleet Co Inc-202304-US-001042

PATIENT
  Sex: Female

DRUGS (1)
  1. GOODYS COOL ORANGE HEADACHE [Suspect]
     Active Substance: ACETAMINOPHEN\ASPIRIN\CAFFEINE
     Indication: Headache
     Dosage: USED FOR A YEAR AND 6 MOS TAKING 2- 24CT BOXES A WEEK
     Route: 048

REACTIONS (5)
  - Gastritis erosive [Not Recovered/Not Resolved]
  - Pain [Not Recovered/Not Resolved]
  - Vomiting [Not Recovered/Not Resolved]
  - Drug dependence [Not Recovered/Not Resolved]
  - Inappropriate schedule of product administration [None]
